FAERS Safety Report 16934211 (Version 3)
Quarter: 2019Q4

REPORT INFORMATION
  Report Type: Report from Study
  Country: None (occurrence: CA)
  Receive Date: 20191018
  Receipt Date: 20191113
  Transmission Date: 20200122
  Serious: Yes (Death)
  Sender: FDA-Public Use
  Company Number: CA-ABBVIE-19K-028-2969271-00

PATIENT
  Age: 75 Year
  Sex: Male

DRUGS (1)
  1. LEVODOPA/CARBIDOPA [Suspect]
     Active Substance: CARBIDOPA\LEVODOPA
     Indication: PARKINSON^S DISEASE
     Route: 050
     Dates: start: 20150716, end: 20191013

REACTIONS (6)
  - Pneumonia aspiration [Fatal]
  - Vomiting [Unknown]
  - Small intestinal obstruction [Fatal]
  - Hallucination, visual [Unknown]
  - Chest X-ray abnormal [Unknown]
  - Vomiting [Unknown]

NARRATIVE: CASE EVENT DATE: 20191008
